FAERS Safety Report 4989996-7 (Version None)
Quarter: 2006Q2

REPORT INFORMATION
  Report Type: 
  Country: None (occurrence: None)
  Receive Date: 20060503
  Receipt Date: 20060426
  Transmission Date: 20061013
  Serious: Yes (Hospitalization)
  Sender: FDA-Public Use
  Company Number: GB-JNJFOC-20060405972

PATIENT
  Age: 30 Year
  Sex: Female

DRUGS (5)
  1. TRAMADOL HCL [Suspect]
     Indication: ARTHRALGIA
     Dosage: NORMAL THERAPEUTIC DOSE
     Route: 048
  2. SALBUTAMOL [Concomitant]
     Indication: ASTHMA
     Dosage: 2 PUFFS AS NECESSARY
     Route: 055
  3. SERETIDE [Concomitant]
     Route: 055
  4. SERETIDE [Concomitant]
     Indication: ASTHMA
     Route: 055
  5. BUDESONIDE [Concomitant]
     Indication: ASTHMA
     Route: 055

REACTIONS (1)
  - ASTHMA [None]
